FAERS Safety Report 8499166-6 (Version None)
Quarter: 2012Q2

REPORT INFORMATION
  Report Type: 
  Country: None (occurrence: None)
  Receive Date: 20120627
  Receipt Date: 20120612
  Transmission Date: 20120825
  Serious: Yes (Life-Threatening)
  Sender: FDA-Public Use
  Company Number: FR-20120136

PATIENT
  Age: 61 Year
  Sex: Female

DRUGS (1)
  1. HEXABRIX 200 (IOXAGLIC ACID), UNKNOWN [Suspect]
     Indication: SPINAL MYELOGRAM
     Dosage: 12 ML (12 ML, 1 IN 1 TOTAL), INTRATHECAL
     Route: 037

REACTIONS (8)
  - UNRESPONSIVE TO STIMULI [None]
  - BLOOD PRESSURE DECREASED [None]
  - METABOLIC ACIDOSIS [None]
  - RENAL FAILURE [None]
  - INCORRECT ROUTE OF DRUG ADMINISTRATION [None]
  - RESPIRATORY FAILURE [None]
  - CONVULSION [None]
  - ENCEPHALITIS TOXIC [None]
